FAERS Safety Report 6809682-8 (Version None)
Quarter: 2010Q2

REPORT INFORMATION
  Report Type: 
  Country: None (occurrence: None)
  Receive Date: 20100630
  Receipt Date: 20100622
  Transmission Date: 20101027
  Serious: Yes (Hospitalization, Other)
  Sender: FDA-Public Use
  Company Number: IN-BAXTER-2010BH015159

PATIENT
  Age: 59 Year
  Sex: Male

DRUGS (2)
  1. DIANEAL [Suspect]
     Indication: PERITONEAL DIALYSIS
     Route: 033
     Dates: start: 20100501
  2. EXTRANEAL [Suspect]
     Indication: PERITONEAL DIALYSIS
     Route: 033
     Dates: start: 20100501

REACTIONS (2)
  - PERITONITIS [None]
  - SEPSIS [None]
